FAERS Safety Report 21021392 (Version 1)
Quarter: 2022Q2

REPORT INFORMATION
  Report Type: Report from Study
  Country: GB (occurrence: GR)
  Receive Date: 20220629
  Receipt Date: 20220629
  Transmission Date: 20220721
  Serious: Yes (Other)
  Sender: FDA-Public Use
  Company Number: GB-SUN PHARMACEUTICAL INDUSTRIES LTD-2022R1-342360

PATIENT
  Age: 36 Year

DRUGS (7)
  1. ATORVASTATIN [Suspect]
     Active Substance: ATORVASTATIN
     Indication: Dyslipidaemia
     Dosage: 10 MILLIGRAM, DAILY
     Route: 065
  2. HALOPERIDOL [Suspect]
     Active Substance: HALOPERIDOL
     Indication: Depression
     Dosage: 10 MILLIGRAM, DAILY
     Route: 065
  3. LORAZEPAM [Suspect]
     Active Substance: LORAZEPAM
     Indication: Depression
     Dosage: 7.5 MILLIGRAM, DAILY
     Route: 065
  4. PINDOLOL [Suspect]
     Active Substance: PINDOLOL
     Indication: Depression
     Dosage: 5 MILLIGRAM, DAILY
     Route: 065
  5. ROSUVASTATIN [Suspect]
     Active Substance: ROSUVASTATIN
     Indication: Dyslipidaemia
     Dosage: 10 MILLIGRAM, DAILY
     Route: 065
  6. VENLAFAXINE [Suspect]
     Active Substance: VENLAFAXINE HYDROCHLORIDE
     Indication: Depression
     Dosage: 150 MILLIGRAM, DAILY
     Route: 065
  7. BIPERIDEN [Suspect]
     Active Substance: BIPERIDEN
     Indication: Depression
     Dosage: 6 MILLIGRAM, DAILY
     Route: 065

REACTIONS (1)
  - Parkinson^s disease [Unknown]
